FAERS Safety Report 10203944 (Version 1)
Quarter: 2014Q2

REPORT INFORMATION
  Report Type: Spontaneous
  Country: BR (occurrence: BR)
  Receive Date: 20140529
  Receipt Date: 20140529
  Transmission Date: 20141212
  Serious: Yes (Other)
  Sender: FDA-Public Use
  Company Number: BR-ABBVIE-14P-020-1241929-00

PATIENT
  Sex: Female
  Weight: 77 kg

DRUGS (8)
  1. SYNTHROID [Suspect]
     Indication: THYROIDECTOMY
     Route: 048
     Dates: start: 20140425
  2. SYNTHROID [Suspect]
     Route: 048
     Dates: start: 201208, end: 201403
  3. LEVOTHYROXINE SODIUM [Suspect]
     Indication: PRODUCT USED FOR UNKNOWN INDICATION
     Dates: start: 201403
  4. ENALAPRIL MALEATE [Concomitant]
     Indication: HYPERTENSION
     Dosage: 1.25MG(HALF TABLET PER DAY, 4 HOURS AFTER SYNTHROID)
     Route: 048
  5. GINKGO BILOBA [Concomitant]
     Indication: PRODUCT USED FOR UNKNOWN INDICATION
     Route: 048
  6. LABIRIN [Concomitant]
     Indication: LABYRINTHITIS
     Dosage: 1 TABLET WHEN SHE REALIZES OF HAVING A LABYRINTHITIS CRISIS OR IS ABOUT TO EXPERIENCE ONE
     Route: 048
  7. ALL OTHER THERAPEUTIC PRODUCTS [Concomitant]
     Indication: BLOOD CHOLESTEROL ABNORMAL
     Dosage: 20 MG (1 TABLET NEARLY EVERY DAY)
     Route: 048
  8. PASSIFLORINE [Concomitant]
     Indication: SLEEP DISORDER THERAPY

REACTIONS (6)
  - Diabetes mellitus [Recovering/Resolving]
  - Blood triglycerides increased [Recovering/Resolving]
  - Blood pressure fluctuation [Recovering/Resolving]
  - Alopecia [Not Recovered/Not Resolved]
  - Hair disorder [Not Recovered/Not Resolved]
  - Blood cholesterol increased [Unknown]
